FAERS Safety Report 10757449 (Version 1)
Quarter: 2015Q1

REPORT INFORMATION
  Report Type: Spontaneous
  Country: US (occurrence: US)
  Receive Date: 20150203
  Receipt Date: 20150203
  Transmission Date: 20150721
  Serious: No
  Sender: FDA-Public Use
  Company Number: US-AMGEN-USASP2015007543

PATIENT
  Age: 62 Year
  Sex: Female

DRUGS (1)
  1. ENBREL [Suspect]
     Active Substance: ETANERCEPT
     Indication: RHEUMATOID ARTHRITIS
     Dosage: 50 UNSPECIFIED MEASUREMENT, SHE TAKES IT EVERY TWO TO THREE WEEKS WHEN SYMPTOMS OCCUR
     Route: 065
     Dates: start: 200702

REACTIONS (4)
  - Head discomfort [Not Recovered/Not Resolved]
  - Cough [Not Recovered/Not Resolved]
  - Arthritis [Recovered/Resolved]
  - Joint swelling [Not Recovered/Not Resolved]
